FAERS Safety Report 7628436-6 (Version None)
Quarter: 2011Q3

REPORT INFORMATION
  Report Type: 
  Country: None (occurrence: None)
  Receive Date: 20110722
  Receipt Date: 20110714
  Transmission Date: 20111222
  Serious: Yes (Death, Hospitalization)
  Sender: FDA-Public Use
  Company Number: US-JNJFOC-20110706098

PATIENT
  Sex: Male
  Weight: 29 kg

DRUGS (12)
  1. REMICADE [Suspect]
     Indication: CROHN'S DISEASE
     Route: 042
  2. FERROUS SULFATE TAB [Concomitant]
  3. METRONIDAZOLE [Concomitant]
  4. ANTIBIOTICS [Concomitant]
  5. REMICADE [Suspect]
     Route: 042
     Dates: start: 20110525
  6. METHOTREXATE [Concomitant]
     Indication: CROHN'S DISEASE
     Dates: end: 20110101
  7. PENTASA [Concomitant]
  8. MESALAMINE [Concomitant]
  9. CYCLOSPORINE [Concomitant]
  10. OMEPRAZOLE [Concomitant]
  11. FOLIC ACID [Concomitant]
  12. REMICADE [Suspect]
     Route: 042
     Dates: start: 20110406

REACTIONS (4)
  - HISTIOCYTOSIS HAEMATOPHAGIC [None]
  - SEPTIC SHOCK [None]
  - VIRAL INFECTION [None]
  - FUNGAL SKIN INFECTION [None]
